FAERS Safety Report 4681424-4 (Version None)
Quarter: 2005Q2

REPORT INFORMATION
  Report Type: 
  Country: None (occurrence: None)
  Receive Date: 20050601
  Receipt Date: 20050512
  Transmission Date: 20051028
  Serious: Yes (Other)
  Sender: FDA-Public Use
  Company Number: USA050598142

PATIENT
  Age: 50 Year
  Sex: Female

DRUGS (6)
  1. CYMBALTA [Suspect]
     Dosage: 60 MG
     Dates: start: 20050401
  2. AMITRIPTYLINE [Concomitant]
  3. ZOLOFT [Concomitant]
  4. PROVIGIL [Concomitant]
  5. TYLENOL (CAPLET) [Concomitant]
  6. AMBIEN [Concomitant]

REACTIONS (3)
  - BLOOD PRESSURE INCREASED [None]
  - DIZZINESS [None]
  - HYSTERECTOMY [None]
